FAERS Safety Report 8383632-8 (Version None)
Quarter: 2012Q1

REPORT INFORMATION
  Report Type: 
  Country: None (occurrence: None)
  Receive Date: 20120323
  Receipt Date: 20110303
  Transmission Date: 20120608
  Serious: Yes (Other)
  Sender: FDA-Public Use
  Company Number: 163-21880-11030640

PATIENT
  Age: 56 Year
  Sex: Female

DRUGS (8)
  1. LEXAPRO [Concomitant]
  2. AMBIEN [Concomitant]
  3. NAPROXEN [Concomitant]
  4. ATIVAN [Concomitant]
  5. ASPIRIN [Concomitant]
  6. REVLIMID [Suspect]
     Indication: MULTIPLE MYELOMA
     Dosage: 25 MG, 1 IN 1 D, PO
     Route: 048
     Dates: start: 20090101
  7. DEXAMETHASONE [Concomitant]
  8. ZOFRAN [Concomitant]

REACTIONS (2)
  - NEUROPATHY PERIPHERAL [None]
  - OEDEMA PERIPHERAL [None]
